FAERS Safety Report 13526680 (Version 1)
Quarter: 2017Q2

REPORT INFORMATION
  Report Type: Spontaneous
  Country: US (occurrence: US)
  Receive Date: 20170508
  Receipt Date: 20170508
  Transmission Date: 20170830
  Serious: No
  Sender: FDA-Public Use
  Company Number: None

PATIENT
  Sex: Female

DRUGS (1)
  1. IBRANCE [Suspect]
     Active Substance: PALBOCICLIB
     Indication: BREAST CANCER FEMALE
     Dosage: 125MG TAKE ONE CAPSULE ORALLY DAILY WITH FOOD, FOR 21 DAYS ON THEN 7 DAYS OFF
     Route: 048
     Dates: start: 20170223

REACTIONS (1)
  - Depression [None]
